FAERS Safety Report 10339768 (Version 1)
Quarter: 2014Q3

REPORT INFORMATION
  Report Type: Spontaneous
  Country: FR (occurrence: None)
  Receive Date: 20140722
  Receipt Date: 20140722
  Transmission Date: 20150326
  Serious: Yes (Hospitalization)
  Sender: FDA-Public Use
  Company Number: 2437706

PATIENT
  Age: 49 Year
  Sex: Female

DRUGS (7)
  1. LEVOTHYROX [Concomitant]
     Active Substance: LEVOTHYROXINE
  2. LEXOMIL [Concomitant]
     Active Substance: BROMAZEPAM
  3. SERETIDE [Concomitant]
     Active Substance: FLUTICASONE FUROATE\SALMETEROL XINAFOATE
  4. CONTRAMAL [Concomitant]
     Active Substance: TRAMADOL HYDROCHLORIDE
  5. PAMIDRONIC ACID [Suspect]
     Active Substance: PAMIDRONIC ACID
     Indication: LUMBAR VERTEBRAL FRACTURE
     Dosage: 60 MG MILLIGRAM(S) (UNKNOWN) INTRAVENOUS (NOT OTHERWISE SPECIFIED)??20-JUN-2-14 8:00 PM - 21-JUN-2014
     Route: 042
     Dates: start: 20140620, end: 20140621
  6. KARDEGIC [Concomitant]
     Active Substance: ASPIRIN LYSINE
  7. LAROXYL [Concomitant]
     Active Substance: AMITRIPTYLINE

REACTIONS (3)
  - Pain in extremity [None]
  - Thrombosis in device [None]
  - Infusion site thrombosis [None]

NARRATIVE: CASE EVENT DATE: 20140621
